FAERS Safety Report 6486459-7 (Version None)
Quarter: 2009Q4

REPORT INFORMATION
  Report Type: 
  Country: None (occurrence: None)
  Receive Date: 20091210
  Receipt Date: 20091130
  Transmission Date: 20100525
  Serious: Yes (Hospitalization)
  Sender: FDA-Public Use
  Company Number: TR-KINGPHARMUSA00001-K200901496

PATIENT
  Age: 3 Year
  Sex: Male

DRUGS (1)
  1. BICILLIN L-A [Suspect]
     Dosage: UNK
     Route: 030

REACTIONS (8)
  - ECCHYMOSIS [None]
  - EMBOLIA CUTIS MEDICAMENTOSA [None]
  - ERYTHEMA [None]
  - FEELING COLD [None]
  - LIVIDITY [None]
  - OEDEMA [None]
  - PAIN [None]
  - SKIN NECROSIS [None]
